FAERS Safety Report 17000863 (Version 2)
Quarter: 2020Q1

REPORT INFORMATION
  Report Type: Spontaneous
  Country: FR (occurrence: FR)
  Receive Date: 20191106
  Receipt Date: 20200117
  Transmission Date: 20200409
  Serious: Yes (Other)
  Sender: FDA-Public Use
  Company Number: FR-009507513-1910FRA014832

PATIENT
  Age: 38 Year
  Sex: Female

DRUGS (1)
  1. NEXPLANON [Suspect]
     Active Substance: ETONOGESTREL
     Dosage: 1 IMPLANT , ON LEFT ARM (IN THE SULCUS BICIPITALIS MEDIALIS (GROOVE BETWWEN BICEPS AND TRICEPS))
     Route: 058
     Dates: start: 20191001

REACTIONS (4)
  - Device deployment issue [Not Recovered/Not Resolved]
  - Complication associated with device [Not Recovered/Not Resolved]
  - Syncope [Unknown]
  - Anxiety [Unknown]

NARRATIVE: CASE EVENT DATE: 201910
